FAERS Safety Report 20722343 (Version 1)
Quarter: 2022Q2

REPORT INFORMATION
  Report Type: Report from Study
  Country: US (occurrence: US)
  Receive Date: 20220418
  Receipt Date: 20220418
  Transmission Date: 20220721
  Serious: Yes (Other)
  Sender: FDA-Public Use
  Company Number: US-GILEAD-2022-0578001

PATIENT
  Sex: Female

DRUGS (2)
  1. SACITUZUMAB GOVITECAN [Suspect]
     Active Substance: SACITUZUMAB GOVITECAN
     Indication: Breast cancer
     Dosage: CYCLE 1 DAY 1 ; RECEIVED 6 CYCLES
     Route: 042
     Dates: start: 20200522
  2. SACITUZUMAB GOVITECAN [Suspect]
     Active Substance: SACITUZUMAB GOVITECAN
     Dosage: RECEIVED 8 CYCLES
     Route: 042
     Dates: start: 20210721, end: 20220302

REACTIONS (2)
  - Breast cancer recurrent [Not Recovered/Not Resolved]
  - Drug ineffective [Unknown]
